FAERS Safety Report 15100588 (Version 1)
Quarter: 2018Q3

REPORT INFORMATION
  Report Type: Spontaneous
  Country: IT (occurrence: IT)
  Receive Date: 20180703
  Receipt Date: 20180703
  Transmission Date: 20181010
  Serious: Yes (Other)
  Sender: FDA-Public Use
  Company Number: IT-AMGEN-ITASP2018088374

PATIENT
  Age: 53 Year
  Sex: Female
  Weight: 69 kg

DRUGS (20)
  1. ENDOXAN [Concomitant]
     Active Substance: CYCLOPHOSPHAMIDE
  2. FULVESTRANT. [Concomitant]
     Active Substance: FULVESTRANT
  3. COLECALCIFEROL [Concomitant]
     Active Substance: CHOLECALCIFEROL
  4. EPIRUBICIN HYDROCHLORIDE. [Concomitant]
     Active Substance: EPIRUBICIN HYDROCHLORIDE
  5. AFINITOR [Concomitant]
     Active Substance: EVEROLIMUS
  6. FEMARA [Concomitant]
     Active Substance: LETROZOLE
  7. XGEVA [Suspect]
     Active Substance: DENOSUMAB
     Indication: METASTASES TO BONE
     Dosage: 120 MG, CYCLICAL
     Route: 058
     Dates: start: 20120618
  8. LEUPRORELIN ACETATE [Concomitant]
     Active Substance: LEUPROLIDE ACETATE
  9. RANITIDINE. [Concomitant]
     Active Substance: RANITIDINE
  10. PANTORC [Concomitant]
     Active Substance: PANTOPRAZOLE SODIUM
  11. SOLDESAM [Concomitant]
     Active Substance: DEXAMETHASONE
  12. ZOLEDRONIC ACID SANDOZ [Concomitant]
  13. IVOR [Concomitant]
     Active Substance: BEMIPARIN SODIUM
  14. EXEMESTANE ACTAVIS [Concomitant]
     Active Substance: EXEMESTANE
  15. LEVOPRAID [Concomitant]
  16. HALAVEN [Concomitant]
     Active Substance: ERIBULIN MESYLATE
     Dosage: 0.44 MG/ML, UNK
  17. ZOFRAN [Concomitant]
     Active Substance: ONDANSETRON HYDROCHLORIDE
  18. METHOTREXATE. [Concomitant]
     Active Substance: METHOTREXATE
  19. ABRAXANE [Concomitant]
     Active Substance: PACLITAXEL
  20. AROMASIN [Concomitant]
     Active Substance: EXEMESTANE

REACTIONS (1)
  - Osteonecrosis of jaw [Unknown]

NARRATIVE: CASE EVENT DATE: 20141215
